FAERS Safety Report 17984624 (Version 1)
Quarter: 2020Q3

REPORT INFORMATION
  Report Type: Spontaneous
  Country: US (occurrence: US)
  Receive Date: 20200706
  Receipt Date: 20200706
  Transmission Date: 20201103
  Serious: No
  Sender: FDA-Public Use
  Company Number: US-SA-2020SA173016

PATIENT

DRUGS (1)
  1. AUBAGIO [Suspect]
     Active Substance: TERIFLUNOMIDE
     Dosage: DURATION ON THERAPY: 2 WEEKS

REACTIONS (2)
  - Anxiety [Recovered/Resolved]
  - Blood pressure increased [Recovered/Resolved]
